FAERS Safety Report 6266908-X (Version None)
Quarter: 2009Q3

REPORT INFORMATION
  Report Type: 
  Country: None (occurrence: None)
  Receive Date: 20090714
  Receipt Date: 20090703
  Transmission Date: 20100115
  Serious: Yes (Other)
  Sender: FDA-Public Use
  Company Number: PHHY2009MX26626

PATIENT
  Sex: Female

DRUGS (6)
  1. ACLASTA [Suspect]
     Indication: OSTEOPOROSIS
     Dosage: 5 MG/100 ML
     Dates: start: 20080503
  2. PREXIGE [Suspect]
     Dosage: UNK
     Dates: start: 20090401
  3. NORVASC [Concomitant]
     Dosage: UNK
     Dates: start: 20090401
  4. LOPRESOR [Concomitant]
     Dosage: UNK
     Dates: start: 20090401
  5. LEXAPRO [Concomitant]
  6. LASIX [Concomitant]
     Dosage: UNK
     Dates: start: 20090401

REACTIONS (2)
  - DIALYSIS [None]
  - RENAL DISORDER [None]
